FAERS Safety Report 9816626 (Version 1)
Quarter: 2014Q1

REPORT INFORMATION
  Report Type: Spontaneous
  Country: US (occurrence: US)
  Receive Date: 20140114
  Receipt Date: 20140114
  Transmission Date: 20141002
  Serious: Yes (Other)
  Sender: FDA-Public Use
  Company Number: US-ENDO PHARMACEUTICALS INC.-PERC20130046

PATIENT
  Sex: Female

DRUGS (2)
  1. PERCOCET [Suspect]
     Indication: FOOT FRACTURE
     Dosage: UNKNOWN
     Route: 048
  2. OXYCONTIN [Suspect]
     Indication: FOOT FRACTURE
     Dosage: UNKNOWN
     Route: 048

REACTIONS (2)
  - Suicide attempt [Recovered/Resolved]
  - Drug dependence [Unknown]
